FAERS Safety Report 5586869-6 (Version None)
Quarter: 2008Q1

REPORT INFORMATION
  Report Type: 
  Country: None (occurrence: None)
  Receive Date: 20080108
  Receipt Date: 20080108
  Transmission Date: 20080703
  Serious: Yes (Life-Threatening)
  Sender: FDA-Public Use
  Company Number: None

PATIENT
  Age: 72 Year
  Sex: Male
  Weight: 107.0489 kg

DRUGS (1)
  1. PREDNISONE TAB [Suspect]
     Dates: start: 20071231

REACTIONS (1)
  - PHARYNGEAL OEDEMA [None]
